FAERS Safety Report 8190533-7 (Version None)
Quarter: 2012Q1

REPORT INFORMATION
  Report Type: 
  Country: None (occurrence: None)
  Receive Date: 20120305
  Receipt Date: 20120227
  Transmission Date: 20120608
  Serious: Yes (Other)
  Sender: FDA-Public Use
  Company Number: 2012MA002668

PATIENT
  Age: 84 Year
  Sex: Female

DRUGS (8)
  1. ASPIRIN [Concomitant]
  2. SALMETEROL [Concomitant]
  3. SALBUTMOL [Concomitant]
  4. DONEPEZIL HYDROCHLORIDE [Suspect]
     Indication: DEMENTIA
  5. FLUTICASONE PROPIONATE [Concomitant]
  6. AMLODIPINE [Concomitant]
  7. LISINOPRIL [Concomitant]
  8. LANSOPRAZOLE [Concomitant]

REACTIONS (4)
  - BLISTER [None]
  - LINEAR IGA DISEASE [None]
  - RASH [None]
  - PAPULE [None]
